FAERS Safety Report 26036948 (Version 2)
Quarter: 2025Q4

REPORT INFORMATION
  Report Type: Spontaneous
  Country: TH (occurrence: TH)
  Receive Date: 20251112
  Receipt Date: 20251118
  Transmission Date: 20260118
  Serious: Yes (Other)
  Sender: INCYTE
  Company Number: TH-002147023-NVSC2025TH171037

PATIENT
  Age: 66 Year

DRUGS (3)
  1. RUXOLITINIB [Suspect]
     Active Substance: RUXOLITINIB
     Indication: Myelofibrosis
     Dosage: 20 MG, BID (1X2)
  2. RUXOLITINIB [Suspect]
     Active Substance: RUXOLITINIB
     Dosage: 5 MG, BID
  3. HYDROXYUREA [Concomitant]
     Active Substance: HYDROXYUREA
     Indication: Myelofibrosis
     Dosage: 500 MG, QD
     Route: 065

REACTIONS (10)
  - Hyperkalaemia [Unknown]
  - Bone marrow infiltration [Unknown]
  - Weight decreased [Unknown]
  - Haemoglobin decreased [Unknown]
  - White blood cell count increased [Unknown]
  - Splenomegaly [Unknown]
  - Blood creatinine increased [Unknown]
  - Platelet count increased [Unknown]
  - Platelet count decreased [Unknown]
  - Fatigue [Unknown]
